FAERS Safety Report 7382637-3 (Version None)
Quarter: 2011Q1

REPORT INFORMATION
  Report Type: 
  Country: None (occurrence: None)
  Receive Date: 20110329
  Receipt Date: 20110322
  Transmission Date: 20110831
  Serious: No
  Sender: FDA-Public Use
  Company Number: US-BAYER-2011-026673

PATIENT
  Sex: Female

DRUGS (1)
  1. ALEVE (CAPLET) [Suspect]
     Indication: BACK PAIN
     Dosage: DO NOT HAVE TO TAKE MORE THAN 2 DF, BOTTLE COUNT UNKNOWN
     Route: 048

REACTIONS (1)
  - NO ADVERSE EVENT [None]
